FAERS Safety Report 7562512-1 (Version None)
Quarter: 2011Q2

REPORT INFORMATION
  Report Type: 
  Country: None (occurrence: None)
  Receive Date: 20110621
  Receipt Date: 20110621
  Transmission Date: 20111010
  Serious: Yes (Other)
  Sender: FDA-Public Use
  Company Number: None

PATIENT
  Age: 56 Year
  Sex: Female

DRUGS (4)
  1. TRAZODONE HCL [Concomitant]
  2. TRAZODONE HCL [Concomitant]
  3. GABAPENTIN [Suspect]
     Indication: PAIN
     Dosage: 300MG ONCE A NIGHT PO
     Route: 048
     Dates: start: 20110601, end: 20110620
  4. ZOLPIDEM [Concomitant]

REACTIONS (3)
  - ASTHENIA [None]
  - FALL [None]
  - MYALGIA [None]
